FAERS Safety Report 7790310-2 (Version None)
Quarter: 2011Q3

REPORT INFORMATION
  Report Type: 
  Country: None (occurrence: None)
  Receive Date: 20110930
  Receipt Date: 20110919
  Transmission Date: 20111222
  Serious: Yes (Other)
  Sender: FDA-Public Use
  Company Number: DE-MYLANLABS-2011S1019490

PATIENT
  Age: 70 Year
  Sex: Female

DRUGS (2)
  1. IRBESARTAN [Concomitant]
     Indication: HYPERTENSION
     Route: 048
  2. GABAPENTIN [Suspect]
     Indication: PAIN IN EXTREMITY
     Route: 048
     Dates: start: 20110401, end: 20110912

REACTIONS (11)
  - ABDOMINAL PAIN UPPER [None]
  - SOMNOLENCE [None]
  - PRURITUS [None]
  - ANXIETY [None]
  - DYSPNOEA [None]
  - MUSCLE SPASMS [None]
  - NERVOUSNESS [None]
  - PYREXIA [None]
  - MYALGIA [None]
  - DECREASED APPETITE [None]
  - NAUSEA [None]
